FAERS Safety Report 17466687 (Version 2)
Quarter: 2020Q1

REPORT INFORMATION
  Report Type: Report from Study
  Country: GB (occurrence: GB)
  Receive Date: 20200227
  Receipt Date: 20200326
  Transmission Date: 20200409
  Serious: Yes (Other)
  Sender: FDA-Public Use
  Company Number: GB-SAMSUNG BIOEPIS-SB-2020-06347

PATIENT
  Age: 30 Year
  Sex: Male

DRUGS (1)
  1. BENEPALI [Suspect]
     Active Substance: ETANERCEPT
     Indication: ANKYLOSING SPONDYLITIS
     Route: 058
     Dates: start: 20180323

REACTIONS (7)
  - Infection [Unknown]
  - Ankylosing spondylitis [Unknown]
  - Immunosuppression [Unknown]
  - Tonsillitis [Unknown]
  - Limb crushing injury [Unknown]
  - Ear infection [Unknown]
  - Nasopharyngitis [Recovering/Resolving]
